FAERS Safety Report 15453784 (Version 2)
Quarter: 2018Q4

REPORT INFORMATION
  Report Type: Report from Study
  Country: None (occurrence: US)
  Receive Date: 20181001
  Receipt Date: 20181115
  Transmission Date: 20190204
  Serious: Yes (Hospitalization, Other)
  Sender: FDA-Public Use
  Company Number: US-ABBVIE-18K-163-2358133-00

PATIENT
  Age: 57 Year
  Sex: Male
  Weight: 153.45 kg

DRUGS (1)
  1. HUMIRA [Suspect]
     Active Substance: ADALIMUMAB
     Indication: PSORIASIS
     Route: 058
     Dates: end: 2018

REACTIONS (2)
  - Immunosuppression [Unknown]
  - Localised infection [Unknown]

NARRATIVE: CASE EVENT DATE: 201805
